FAERS Safety Report 7707090-9 (Version None)
Quarter: 2011Q3

REPORT INFORMATION
  Report Type: 
  Country: None (occurrence: None)
  Receive Date: 20110824
  Receipt Date: 20110818
  Transmission Date: 20111222
  Serious: Yes (Death, Other)
  Sender: FDA-Public Use
  Company Number: US-PFIZER INC-2007036616

PATIENT
  Sex: Male

DRUGS (3)
  1. NEURONTIN [Suspect]
     Indication: CEREBROVASCULAR ACCIDENT
  2. NEURONTIN [Suspect]
     Indication: DIABETES MELLITUS
     Dosage: UNK
     Dates: start: 20000101
  3. NEURONTIN [Suspect]
     Indication: DEPRESSION
     Dosage: DAILY
     Dates: start: 20010101, end: 20030101

REACTIONS (3)
  - CEREBROVASCULAR ACCIDENT [None]
  - SUICIDAL IDEATION [None]
  - AMNESIA [None]
